FAERS Safety Report 9343254 (Version 1)
Quarter: 2013Q2

REPORT INFORMATION
  Report Type: Spontaneous
  Country: NL (occurrence: NL)
  Receive Date: 20130611
  Receipt Date: 20130611
  Transmission Date: 20140414
  Serious: No
  Sender: FDA-Public Use
  Company Number: NL-US-EMD SERONO, INC.-7182318

PATIENT
  Age: 28 Year
  Sex: Male
  Weight: 96 kg

DRUGS (2)
  1. REBIF [Suspect]
     Indication: MULTIPLE SCLEROSIS
     Route: 058
     Dates: start: 20120828
  2. PARACETAMOL [Concomitant]
     Indication: PROPHYLAXIS

REACTIONS (2)
  - Haemoptysis [Not Recovered/Not Resolved]
  - Feeling hot [Not Recovered/Not Resolved]
